FAERS Safety Report 25949718 (Version 1)
Quarter: 2025Q4

REPORT INFORMATION
  Report Type: Spontaneous
  Country: US (occurrence: US)
  Receive Date: 20251022
  Receipt Date: 20251022
  Transmission Date: 20260117
  Serious: No
  Sender: BAUSCH AND LOMB
  Company Number: US-BAUSCH-BH-2025-018777

PATIENT
  Sex: Female

DRUGS (1)
  1. ALTRENO [Suspect]
     Active Substance: TRETINOIN
     Indication: Acne
     Route: 061
     Dates: start: 2024

REACTIONS (2)
  - Skin tightness [Unknown]
  - Dry skin [Unknown]
